FAERS Safety Report 7802683-2 (Version None)
Quarter: 2011Q4

REPORT INFORMATION
  Report Type: 
  Country: None (occurrence: None)
  Receive Date: 20111007
  Receipt Date: 20110927
  Transmission Date: 20120403
  Serious: Yes (Hospitalization, Disabling, Other)
  Sender: FDA-Public Use
  Company Number: PHHY2011US31410

PATIENT
  Sex: Female

DRUGS (1)
  1. FEMARA [Suspect]
     Dosage: 2.5 MG, QD
     Dates: start: 20100501, end: 20110601

REACTIONS (9)
  - PAIN [None]
  - HOT FLUSH [None]
  - NIGHT SWEATS [None]
  - FATIGUE [None]
  - SEPSIS [None]
  - HEADACHE [None]
  - RASH [None]
  - SKIN GRAFT INFECTION [None]
  - CELLULITIS [None]
